FAERS Safety Report 24595262 (Version 1)
Quarter: 2024Q4

REPORT INFORMATION
  Report Type: Report from Study
  Country: US (occurrence: US)
  Receive Date: 20241108
  Receipt Date: 20241108
  Transmission Date: 20250114
  Serious: Yes (Other)
  Sender: ABBVIE
  Company Number: US-ABBVIE-5991693

PATIENT
  Age: 61 Year
  Sex: Female

DRUGS (1)
  1. RINVOQ [Suspect]
     Active Substance: UPADACITINIB
     Indication: Rheumatoid arthritis
     Route: 048
     Dates: start: 20241024

REACTIONS (6)
  - Hip arthroplasty [Unknown]
  - Knee arthroplasty [Unknown]
  - Hand deformity [Not Recovered/Not Resolved]
  - Lower limb fracture [Unknown]
  - Gait inability [Unknown]
  - Femur fracture [Unknown]

NARRATIVE: CASE EVENT DATE: 20240101
